FAERS Safety Report 5050794-X (Version None)
Quarter: 2006Q3

REPORT INFORMATION
  Report Type: 
  Country: None (occurrence: None)
  Receive Date: 20060710
  Receipt Date: 20060630
  Transmission Date: 20061208
  Serious: Yes (Hospitalization)
  Sender: FDA-Public Use
  Company Number: 2006082534

PATIENT
  Age: 85 Year
  Sex: Female

DRUGS (2)
  1. SERTRALINE [Suspect]
     Indication: MAJOR DEPRESSION
     Dosage: 25 MG
  2. ALPRAZOLAM EXTENDED-RELEASE [Suspect]
     Indication: MAJOR DEPRESSION
     Dosage: 0.5 MG

REACTIONS (8)
  - ANOREXIA [None]
  - CONFUSIONAL STATE [None]
  - DEPRESSED LEVEL OF CONSCIOUSNESS [None]
  - DIARRHOEA [None]
  - HYPOKALAEMIA [None]
  - HYPONATRAEMIA [None]
  - OEDEMA PERIPHERAL [None]
  - PULMONARY OEDEMA [None]
